FAERS Safety Report 6989383-6 (Version None)
Quarter: 2010Q3

REPORT INFORMATION
  Report Type: 
  Country: None (occurrence: None)
  Receive Date: 20100916
  Receipt Date: 20091207
  Transmission Date: 20110219
  Serious: Yes (Hospitalization, Other)
  Sender: FDA-Public Use
  Company Number: US-PFIZER INC-2009285684

PATIENT
  Sex: Female
  Weight: 90.703 kg

DRUGS (12)
  1. LYRICA [Suspect]
     Indication: NEUROPATHY PERIPHERAL
     Dosage: 100 MG, 3X/DAY
     Dates: start: 20060101, end: 20090301
  2. LYRICA [Suspect]
     Indication: NEURALGIA
  3. SYNTHROID [Concomitant]
     Dosage: UNK
  4. XANAX [Concomitant]
     Indication: MYOCARDIAL INFARCTION
     Dosage: 0.25 MG, 2X/DAY
     Route: 048
  5. METFORMIN [Concomitant]
     Dosage: UNK
  6. INSULIN [Concomitant]
     Dosage: UNK
  7. ACETYLSALICYLIC ACID [Concomitant]
     Dosage: UNK
  8. MORPHINE [Concomitant]
     Indication: ARTHROPATHY
  9. MORPHINE [Concomitant]
     Indication: BACK PAIN
  10. MORPHINE [Concomitant]
     Indication: NERVE ROOT LESION
  11. MORPHINE [Concomitant]
     Indication: SPINAL DISORDER
  12. LISINOPRIL [Concomitant]
     Indication: HYPERTENSION
     Dosage: DAILY

REACTIONS (8)
  - BALANCE DISORDER [None]
  - BLINDNESS [None]
  - BREAKTHROUGH PAIN [None]
  - CARDIAC DISORDER [None]
  - CATARACT [None]
  - EYE HAEMORRHAGE [None]
  - IMPAIRED WORK ABILITY [None]
  - OSTEOMYELITIS [None]
